FAERS Safety Report 6997028-4 (Version None)
Quarter: 2010Q3

REPORT INFORMATION
  Report Type: 
  Country: None (occurrence: None)
  Receive Date: 20100918
  Receipt Date: 20090910
  Transmission Date: 20110219
  Serious: No
  Sender: FDA-Public Use
  Company Number: US-WYE-H10928509

PATIENT
  Sex: Female

DRUGS (4)
  1. EFFEXOR [Suspect]
     Indication: DEPRESSION
     Route: 048
     Dates: start: 20020101, end: 20090701
  2. EFFEXOR [Suspect]
     Dosage: ^TAPERED BY BREAKING TABLETS IN HALF AND THEN IN QUARTERS^
     Route: 048
     Dates: start: 20090701, end: 20090905
  3. DICLOFENAC [Concomitant]
  4. FLEXERIL [Concomitant]

REACTIONS (8)
  - ABNORMAL DREAMS [None]
  - CONSTIPATION [None]
  - DRUG WITHDRAWAL SYNDROME [None]
  - INCREASED APPETITE [None]
  - NAUSEA [None]
  - PARAESTHESIA [None]
  - PHOTOPHOBIA [None]
  - VOMITING [None]
